FAERS Safety Report 4908661-5 (Version None)
Quarter: 2006Q1

REPORT INFORMATION
  Report Type: 
  Country: None (occurrence: None)
  Receive Date: 20060210
  Receipt Date: 20051005
  Transmission Date: 20060701
  Serious: No
  Sender: FDA-Public Use
  Company Number: US-GLAXOSMITHKLINE-A0577193A

PATIENT
  Age: 88 Year
  Sex: Female

DRUGS (3)
  1. PAXIL CR [Suspect]
     Dosage: 12.5MG PER DAY
     Route: 048
     Dates: start: 20050929, end: 20050929
  2. PROPOXYPHENE NAPSYLATE W/ ACETAMINOPHEN [Concomitant]
     Indication: ARTHRITIS
  3. DARVOCET-N 50 [Concomitant]
     Indication: ARTHRITIS

REACTIONS (4)
  - ABDOMINAL DISTENSION [None]
  - DYSGEUSIA [None]
  - ILL-DEFINED DISORDER [None]
  - NAUSEA [None]
